FAERS Safety Report 7359062-4 (Version None)
Quarter: 2011Q1

REPORT INFORMATION
  Report Type: 
  Country: None (occurrence: None)
  Receive Date: 20110317
  Receipt Date: 20110308
  Transmission Date: 20110831
  Serious: Yes (Hospitalization)
  Sender: FDA-Public Use
  Company Number: GB-WATSON-2011-03135

PATIENT
  Age: 36 Year
  Sex: Female

DRUGS (2)
  1. GABAPENTIN [Suspect]
     Indication: HEADACHE
     Dosage: UNK
  2. INDOMETHACIN [Suspect]
     Indication: HEADACHE
     Dosage: UNK

REACTIONS (9)
  - VERTIGO [None]
  - CEREBROVASCULAR SPASM [None]
  - HEADACHE [None]
  - CONFUSIONAL STATE [None]
  - DYSPRAXIA [None]
  - MYOCLONUS [None]
  - VISUAL ACUITY REDUCED [None]
  - SENSORY LOSS [None]
  - ATAXIA [None]
